FAERS Safety Report 11618363 (Version 1)
Quarter: 2015Q4

REPORT INFORMATION
  Report Type: Spontaneous
  Country: US (occurrence: US)
  Receive Date: 20151012
  Receipt Date: 20151012
  Transmission Date: 20160304
  Serious: Yes (Hospitalization)
  Sender: FDA-Public Use
  Company Number: US-ROCHE-1355271

PATIENT
  Sex: Female

DRUGS (4)
  1. XELODA [Suspect]
     Active Substance: CAPECITABINE
     Indication: RECTAL CANCER
     Dosage: 14 DAYS ON 7 OFF, 1000 MG IN MORNING, 1500 MG IN EVENING
     Route: 048
     Dates: start: 20131207
  2. XELODA [Suspect]
     Active Substance: CAPECITABINE
     Indication: COLON CANCER
     Dosage: 500 MG (2) IN AM, (3) IN PM FOR 14DAYS/7 DAYS OFF
     Route: 048
  3. KEFLEX [Concomitant]
     Active Substance: CEPHALEXIN
  4. XELODA [Suspect]
     Active Substance: CAPECITABINE
     Route: 048
     Dates: start: 20131207

REACTIONS (13)
  - Abdominal pain upper [Recovered/Resolved]
  - Fatigue [Unknown]
  - Incorrect dose administered [Unknown]
  - Dizziness [Unknown]
  - Arthralgia [Unknown]
  - Drug dose omission [Unknown]
  - Gastrointestinal disorder [Unknown]
  - Weight increased [Unknown]
  - Skin fissures [Unknown]
  - Rash [Unknown]
  - Malaise [Unknown]
  - Product quality issue [Unknown]
  - Diarrhoea [Unknown]
